FAERS Safety Report 23054032 (Version 2)
Quarter: 2023Q4

REPORT INFORMATION
  Report Type: Report from Study
  Country: BE (occurrence: BE)
  Receive Date: 20231011
  Receipt Date: 20231017
  Transmission Date: 20240109
  Serious: Yes (Life-Threatening, Hospitalization, Other)
  Sender: FDA-Public Use
  Company Number: BE-KOREA IPSEN Pharma-2023-22995

PATIENT

DRUGS (9)
  1. CABOZANTINIB [Suspect]
     Active Substance: CABOZANTINIB
     Indication: Renal cell carcinoma
     Dosage: 40 MG, QD
     Route: 065
     Dates: start: 20230713, end: 20230714
  2. CABOZANTINIB [Suspect]
     Active Substance: CABOZANTINIB
     Dosage: 40 MG, QD
     Route: 065
     Dates: start: 20230719
  3. NIVOLUMAB [Concomitant]
     Active Substance: NIVOLUMAB
     Indication: Renal cell carcinoma
     Dosage: 240 MG
     Dates: start: 20230713
  4. NIVOLUMAB [Concomitant]
     Active Substance: NIVOLUMAB
     Dosage: 240 MG
     Dates: start: 20230731
  5. NIVOLUMAB [Concomitant]
     Active Substance: NIVOLUMAB
     Dosage: 240 MG
     Dates: start: 20230814
  6. NIVOLUMAB [Concomitant]
     Active Substance: NIVOLUMAB
     Dosage: 240 MG
     Dates: start: 20230828
  7. NIVOLUMAB [Concomitant]
     Active Substance: NIVOLUMAB
     Dosage: 480 MG
     Dates: start: 20230911
  8. MOXOFLOXACINE [Concomitant]
     Indication: C-reactive protein increased
     Dosage: 400 MG, QD
     Route: 048
     Dates: start: 20230716, end: 20230717
  9. AVELOX [Concomitant]
     Active Substance: MOXIFLOXACIN HYDROCHLORIDE
     Indication: C-reactive protein increased
     Dosage: 400 MG, QD
     Route: 048
     Dates: start: 20230718, end: 20230720

REACTIONS (5)
  - Hepatitis [Not Recovered/Not Resolved]
  - Pulmonary thrombosis [Recovered/Resolved]
  - Fatigue [Unknown]
  - Nausea [Unknown]
  - Stomatitis [Unknown]

NARRATIVE: CASE EVENT DATE: 20230714
